FAERS Safety Report 24197983 (Version 1)
Quarter: 2024Q3

REPORT INFORMATION
  Report Type: Spontaneous
  Country: CN (occurrence: CN)
  Receive Date: 20240812
  Receipt Date: 20240812
  Transmission Date: 20241016
  Serious: Yes (Hospitalization)
  Sender: Haleon PLC
  Company Number: CN-HALEON-2190477

PATIENT
  Age: 49 Year
  Sex: Female

DRUGS (1)
  1. IBUPROFEN [Suspect]
     Active Substance: IBUPROFEN
     Indication: Pyrexia
     Route: 048
     Dates: start: 20240509, end: 20240509

REACTIONS (12)
  - Jaundice [Recovering/Resolving]
  - Pruritus [Recovering/Resolving]
  - Faeces discoloured [Recovering/Resolving]
  - Decreased appetite [Recovering/Resolving]
  - Petechiae [Recovering/Resolving]
  - Faeces pale [Recovering/Resolving]
  - Drug-induced liver injury [Recovering/Resolving]
  - Epistaxis [Recovering/Resolving]
  - Hepatic failure [Recovering/Resolving]
  - Ecchymosis [Recovering/Resolving]
  - Chromaturia [Recovering/Resolving]
  - Asthenia [Recovering/Resolving]

NARRATIVE: CASE EVENT DATE: 20240509
